FAERS Safety Report 4795558-7 (Version None)
Quarter: 2005Q4

REPORT INFORMATION
  Report Type: 
  Country: None (occurrence: None)
  Receive Date: 20051007
  Receipt Date: 20051007
  Transmission Date: 20060501
  Serious: Yes (Other)
  Sender: FDA-Public Use
  Company Number: None

PATIENT
  Age: 29 Year
  Sex: Male

DRUGS (1)
  1. LISINOPRIL [Suspect]
     Indication: RENAL FAILURE CHRONIC
     Dosage: 2 TABS DAILY
     Dates: start: 20040506, end: 20050906

REACTIONS (1)
  - DRUG HYPERSENSITIVITY [None]
